FAERS Safety Report 11917384 (Version 3)
Quarter: 2017Q3

REPORT INFORMATION
  Report Type: Spontaneous
  Country: TR (occurrence: TR)
  Receive Date: 20160114
  Receipt Date: 20170926
  Transmission Date: 20171127
  Serious: Yes (Other)
  Sender: FDA-Public Use
  Company Number: TR-ABBVIE-16P-161-1536181-00

PATIENT
  Age: 6 Year
  Sex: Female

DRUGS (2)
  1. LAMOTRIGINE. [Interacting]
     Active Substance: LAMOTRIGINE
     Indication: EPILEPSY
     Route: 065
  2. VALPROIC ACID. [Suspect]
     Active Substance: VALPROIC ACID
     Indication: EPILEPSY
     Route: 065

REACTIONS (7)
  - Drug ineffective [Unknown]
  - Leukocytosis [Recovering/Resolving]
  - Dermatitis bullous [Recovering/Resolving]
  - Stevens-Johnson syndrome [Recovering/Resolving]
  - Stomatitis [Recovering/Resolving]
  - Neutrophilia [Recovering/Resolving]
  - Drug interaction [Recovering/Resolving]
